FAERS Safety Report 9083785 (Version 1)
Quarter: 2013Q1

REPORT INFORMATION
  Report Type: Report from Study
  Country: US (occurrence: US)
  Receive Date: 20130129
  Receipt Date: 20130129
  Transmission Date: 20140127
  Serious: No
  Sender: FDA-Public Use
  Company Number: US-ABBOTT-12P-163-0945404-00

PATIENT
  Age: 68 Year
  Sex: Female

DRUGS (11)
  1. HUMIRA 40 MG/0.8 ML PEN [Suspect]
     Indication: PSORIATIC ARTHROPATHY
     Dates: start: 20120511
  2. HUMIRA 40 MG/0.8 ML PEN [Suspect]
     Indication: PSORIASIS
  3. HUMIRA 40 MG/0.8 ML PEN [Suspect]
     Indication: EYE INFLAMMATION
  4. PREDNISONE [Concomitant]
     Indication: PRODUCT USED FOR UNKNOWN INDICATION
     Dosage: 60MG DAILY
     Dates: start: 201202
  5. PREDNISONE [Concomitant]
     Dosage: 10MG DAILY
  6. PREDNISONE [Concomitant]
     Dosage: 5MG DAILY
  7. LANTUS [Concomitant]
     Indication: DIABETES MELLITUS
     Dosage: 20 UNITS AT NIGHT
  8. METHOTREXATE [Concomitant]
     Indication: PRODUCT USED FOR UNKNOWN INDICATION
     Dosage: 5 TABS EVERY WEDNESDAY
  9. LEVOXYL [Concomitant]
     Indication: PRODUCT USED FOR UNKNOWN INDICATION
     Dosage: 1 TAB EVERY MORNING
  10. PREMARIN [Concomitant]
     Indication: BONE DENSITY ABNORMAL
     Dosage: 1 TAB EVERY MORNING
  11. UNKNOWN BLOOD PRESSURE MEDICATION [Concomitant]
     Indication: HYPERTENSION
     Dosage: 1 TAB DAILY

REACTIONS (4)
  - Needle issue [Unknown]
  - Blood glucose decreased [Unknown]
  - Injection site pain [Recovered/Resolved]
  - Injection site pain [Recovered/Resolved]
